FAERS Safety Report 5086538-5 (Version None)
Quarter: 2006Q3

REPORT INFORMATION
  Report Type: 
  Country: None (occurrence: None)
  Receive Date: 20060703
  Receipt Date: 20051004
  Transmission Date: 20061208
  Serious: No
  Sender: FDA-Public Use
  Company Number: 2005S1009764

PATIENT
  Age: 43 Year
  Sex: Male

DRUGS (1)
  1. CLOZAPINE [Suspect]
     Dosage: 400 MG; QD; PO
     Route: 048
     Dates: start: 20050801, end: 20051003

REACTIONS (1)
  - GRANULOCYTOPENIA [None]
